FAERS Safety Report 9460740 (Version 1)
Quarter: 2013Q3

REPORT INFORMATION
  Report Type: Spontaneous
  Country: US (occurrence: US)
  Receive Date: 20130815
  Receipt Date: 20130815
  Transmission Date: 20140515
  Serious: Yes (Death, Hospitalization)
  Sender: FDA-Public Use
  Company Number: US-GLAXOSMITHKLINE-A1037008A

PATIENT
  Age: 73 Year
  Sex: Male

DRUGS (19)
  1. VENTOLIN [Suspect]
     Indication: DYSPNOEA
     Dosage: 2PUFF TWICE PER DAY
     Route: 055
  2. DEXAMETHASONE [Concomitant]
  3. LEVOTHYROXINE [Concomitant]
  4. NEXIUM [Concomitant]
  5. STOOL SOFTENER [Concomitant]
  6. VALTREX [Concomitant]
  7. ISOSORBIDE [Concomitant]
  8. SENNA [Concomitant]
  9. CITALOPRAM [Concomitant]
  10. LASIX [Concomitant]
  11. METOPROLOL [Concomitant]
  12. VITAMIN D [Concomitant]
  13. FINASTERIDE [Concomitant]
  14. HYDROMORPHONE [Concomitant]
  15. FENTANYL PATCH [Concomitant]
  16. ALBUTEROL [Concomitant]
  17. FORADIL [Concomitant]
  18. MOMETASONE [Concomitant]
  19. UNKNOWN CANCER THERAPY DRUG [Concomitant]

REACTIONS (4)
  - Plasma cell myeloma [Fatal]
  - Renal failure acute [Fatal]
  - Cardiac disorder [Fatal]
  - Ill-defined disorder [Unknown]
